FAERS Safety Report 19749236 (Version 2)
Quarter: 2022Q2

REPORT INFORMATION
  Report Type: Report from Study
  Country: CO (occurrence: CO)
  Receive Date: 20210826
  Receipt Date: 20220511
  Transmission Date: 20220720
  Serious: Yes (Other)
  Sender: FDA-Public Use
  Company Number: CO-ABBVIE-20K-036-3614659-00

PATIENT
  Sex: Female
  Weight: 54 kg

DRUGS (6)
  1. HUMIRA [Suspect]
     Active Substance: ADALIMUMAB
     Indication: Rheumatoid arthritis
     Route: 058
     Dates: end: 20200929
  2. HUMIRA [Suspect]
     Active Substance: ADALIMUMAB
     Route: 058
     Dates: start: 2020
  3. HUMIRA [Suspect]
     Active Substance: ADALIMUMAB
     Indication: Rheumatoid arthritis
     Route: 058
     Dates: start: 20090907
  4. METHOTREXATE [Concomitant]
     Active Substance: METHOTREXATE
     Indication: Rheumatoid arthritis
  5. CHLOROQUINE [Concomitant]
     Active Substance: CHLOROQUINE
     Indication: Product used for unknown indication
  6. HYDROXYCHLOROQUINE [Concomitant]
     Active Substance: HYDROXYCHLOROQUINE
     Indication: Inflammation

REACTIONS (15)
  - Amnesia [Not Recovered/Not Resolved]
  - Hypothyroidism [Recovering/Resolving]
  - Colitis [Recovered/Resolved]
  - Colitis [Recovered/Resolved]
  - Colitis [Recovered/Resolved]
  - Disturbance in attention [Recovering/Resolving]
  - Dysstasia [Recovering/Resolving]
  - Stress [Recovering/Resolving]
  - Hypertension [Recovering/Resolving]
  - Influenza [Recovered/Resolved]
  - Arthralgia [Recovering/Resolving]
  - Neck pain [Recovering/Resolving]
  - Malaise [Recovered/Resolved]
  - Migraine [Recovered/Resolved]
  - Inflammation [Unknown]

NARRATIVE: CASE EVENT DATE: 20090101
